FAERS Safety Report 5243661-X (Version None)
Quarter: 2007Q1

REPORT INFORMATION
  Report Type: 
  Country: None (occurrence: None)
  Receive Date: 20070222
  Receipt Date: 20070214
  Transmission Date: 20070707
  Serious: Yes (Hospitalization)
  Sender: FDA-Public Use
  Company Number: AU-JNJFOC-20070203593

PATIENT
  Age: 24 Year
  Sex: Male

DRUGS (4)
  1. HALOPERIDOL [Suspect]
     Indication: DRUG USE FOR UNKNOWN INDICATION
     Route: 048
  2. DORYX [Concomitant]
     Route: 048
  3. BUPRENORPHINE HCL [Concomitant]
     Route: 048
  4. SERTRALINE HYDROCHLORIDE [Concomitant]

REACTIONS (2)
  - DYSTONIA [None]
  - SWOLLEN TONGUE [None]
